FAERS Safety Report 9649515 (Version 3)
Quarter: 2013Q4

REPORT INFORMATION
  Report Type: Report from Study
  Country: US (occurrence: US)
  Receive Date: 20131028
  Receipt Date: 20131127
  Transmission Date: 20140711
  Serious: Yes (Hospitalization)
  Sender: FDA-Public Use
  Company Number: US-ACTELION-A-NJ2013-88899

PATIENT
  Age: 76 Year
  Sex: Female

DRUGS (2)
  1. TRACLEER [Suspect]
     Indication: PULMONARY ARTERIAL HYPERTENSION
     Dosage: UNK
     Route: 048
  2. ADCIRCA [Concomitant]
     Indication: PULMONARY ARTERIAL HYPERTENSION

REACTIONS (6)
  - Chronic obstructive pulmonary disease [Recovered/Resolved]
  - Pain in extremity [Recovering/Resolving]
  - Dyspnoea [Recovered/Resolved]
  - Nausea [Unknown]
  - Gait disturbance [Not Recovered/Not Resolved]
  - Bursitis [Not Recovered/Not Resolved]
